FAERS Safety Report 21688139 (Version 1)
Quarter: 2022Q4

REPORT INFORMATION
  Report Type: Spontaneous
  Country: SI (occurrence: SI)
  Receive Date: 20221206
  Receipt Date: 20221206
  Transmission Date: 20230113
  Serious: Yes (Other)
  Sender: FDA-Public Use
  Company Number: None

PATIENT
  Age: 67 Year
  Sex: Male

DRUGS (4)
  1. IRINOTECAN [Suspect]
     Active Substance: IRINOTECAN
     Indication: Rectal cancer
     Dosage: STRENGTH  20 MG/ML
     Dates: start: 20210924, end: 20210924
  2. LOPERAMIDE HYDROCHLORIDE [Concomitant]
     Active Substance: LOPERAMIDE HYDROCHLORIDE
     Dosage: STRENGTH 2 MG, AS NECESSARY
  3. CAPECITABINE [Concomitant]
     Active Substance: CAPECITABINE
  4. TORECAN [Concomitant]
     Active Substance: THIETHYLPERAZINE MALATE
     Dosage: AS NECESSARY

REACTIONS (1)
  - Enterocolitis [Recovered/Resolved]

NARRATIVE: CASE EVENT DATE: 20210928
